FAERS Safety Report 9858233 (Version 6)
Quarter: 2014Q2

REPORT INFORMATION
  Report Type: Spontaneous
  Country: IT (occurrence: None)
  Receive Date: 20140129
  Receipt Date: 20140415
  Transmission Date: 20141212
  Serious: Yes (Hospitalization)
  Sender: FDA-Public Use
  Company Number: AUR-APL-2014-00484

PATIENT
  Age: 40 Year
  Sex: Female

DRUGS (4)
  1. PAROXETINE [Suspect]
     Indication: DEPRESSION
     Dosage: 1120 MG, TOTAL 1 IN 1 D, ORAL
     Route: 048
     Dates: start: 20131216, end: 20131216
  2. EN (DELORAZEPAM) [Suspect]
     Indication: PRODUCT USED FOR UNKNOWN INDICATION
     Dosage: 100 MG, TOTAL, ORAL
     Route: 048
     Dates: start: 20131216, end: 20131216
  3. DEPAKIN CHRONO [Suspect]
     Indication: PRODUCT USED FOR UNKNOWN INDICATION
     Dosage: 12500 MG, TOTAL, ORAL
     Route: 048
     Dates: start: 20131216, end: 20131216
  4. ABILIFY (ARIPIPRAZOLE) [Suspect]
     Indication: PRODUCT USED FOR UNKNOWN INDICATION
     Dosage: 60 MG, TOTAL, ORAL
     Route: 048
     Dates: start: 20131216, end: 20131216

REACTIONS (6)
  - Abdominal pain [None]
  - Sopor [None]
  - Drug abuse [None]
  - Alcohol abuse [None]
  - Faecal incontinence [None]
  - Urinary incontinence [None]
